FAERS Safety Report 13886012 (Version 1)
Quarter: 2017Q3

REPORT INFORMATION
  Report Type: Report from Study
  Country: US (occurrence: US)
  Receive Date: 20170821
  Receipt Date: 20170821
  Transmission Date: 20171127
  Serious: Yes (Hospitalization, Other)
  Sender: FDA-Public Use
  Company Number: US-GILEAD-2017-0289312

PATIENT
  Age: 82 Year
  Sex: Female

DRUGS (16)
  1. ROPINIROLE. [Concomitant]
     Active Substance: ROPINIROLE
  2. CLONAZEPAM. [Concomitant]
     Active Substance: CLONAZEPAM
  3. ALDACTONE [Concomitant]
     Active Substance: SPIRONOLACTONE
  4. TIKOSYN [Concomitant]
     Active Substance: DOFETILIDE
  5. ENALAPRIL [Concomitant]
     Active Substance: ENALAPRIL
  6. LASIX [Concomitant]
     Active Substance: FUROSEMIDE
  7. OMEPRAZOLE. [Concomitant]
     Active Substance: OMEPRAZOLE
  8. SOTALOL. [Concomitant]
     Active Substance: SOTALOL
  9. SILDENAFIL. [Concomitant]
     Active Substance: SILDENAFIL
  10. ATORVASTATIN [Concomitant]
     Active Substance: ATORVASTATIN
  11. METFORMIN [Concomitant]
     Active Substance: METFORMIN HYDROCHLORIDE
  12. MULTAQ [Concomitant]
     Active Substance: DRONEDARONE
  13. CARDIZEM [Concomitant]
     Active Substance: DILTIAZEM HYDROCHLORIDE
  14. AMBRISENTAN [Suspect]
     Active Substance: AMBRISENTAN
     Indication: PRODUCT USED FOR UNKNOWN INDICATION
     Dosage: 10 MG, UNK
     Route: 065
  15. PLAVIX [Concomitant]
     Active Substance: CLOPIDOGREL BISULFATE
  16. LABETALOL [Concomitant]
     Active Substance: LABETALOL\LABETALOL HYDROCHLORIDE

REACTIONS (5)
  - Pneumonia [Not Recovered/Not Resolved]
  - Dyspnoea [Not Recovered/Not Resolved]
  - Cardiac failure congestive [Not Recovered/Not Resolved]
  - Flushing [Not Recovered/Not Resolved]
  - Headache [Not Recovered/Not Resolved]

NARRATIVE: CASE EVENT DATE: 20170818
